FAERS Safety Report 5698211-0 (Version None)
Quarter: 2008Q2

REPORT INFORMATION
  Report Type: 
  Country: None (occurrence: None)
  Receive Date: 20080408
  Receipt Date: 20080325
  Transmission Date: 20081010
  Serious: Yes (Other)
  Sender: FDA-Public Use
  Company Number: US-ELI_LILLY_AND_COMPANY-US200803005772

PATIENT
  Sex: Female

DRUGS (7)
  1. CYMBALTA [Suspect]
     Dosage: 60 MG, DAILY (1/D)
     Dates: start: 20070901
  2. ATIVAN [Concomitant]
     Dosage: 1 D/F, UNK
  3. PREMARIN [Concomitant]
     Dosage: 1.25 MG, EACH MORNING
  4. PREMARIN [Concomitant]
     Dosage: 0.625 MG, EACH EVENING
  5. ETHAMBUTOL HYDROCHLORIDE [Concomitant]
     Dosage: 1 D/F, UNK
  6. RIFAMPIN [Concomitant]
     Dosage: 1 D/F, UNK
  7. BIAXIN [Concomitant]
     Dosage: 1 D/F, UNK

REACTIONS (2)
  - DIARRHOEA [None]
  - HEPATOMEGALY [None]
